FAERS Safety Report 5351965-5 (Version None)
Quarter: 2007Q2

REPORT INFORMATION
  Report Type: 
  Country: None (occurrence: None)
  Receive Date: 20070611
  Receipt Date: 20070607
  Transmission Date: 20071010
  Serious: Yes (Other)
  Sender: FDA-Public Use
  Company Number: GB-SP-2007-01935

PATIENT
  Age: 72 Year
  Sex: Male
  Weight: 79 kg

DRUGS (6)
  1. IMMUCYST [Suspect]
     Indication: BLADDER CANCER
     Route: 043
     Dates: start: 20070418, end: 20070502
  2. IMMUCYST [Suspect]
     Route: 043
     Dates: start: 20070418, end: 20070502
  3. ASPIRIN [Concomitant]
  4. AMITRIPTYLINE HCL [Concomitant]
  5. RANITIDINE [Concomitant]
  6. PARACETAMOL [Concomitant]

REACTIONS (5)
  - BLOOD URINE PRESENT [None]
  - DYSURIA [None]
  - POLLAKIURIA [None]
  - URGE INCONTINENCE [None]
  - URINARY INCONTINENCE [None]
